FAERS Safety Report 17831757 (Version 1)
Quarter: 2020Q2

REPORT INFORMATION
  Report Type: Spontaneous
  Country: US (occurrence: US)
  Receive Date: 20200528
  Receipt Date: 20200528
  Transmission Date: 20200714
  Serious: Yes (Other)
  Sender: FDA-Public Use
  Company Number: US-ROCHE-2563923

PATIENT
  Age: 39 Year
  Sex: Female

DRUGS (1)
  1. OCREVUS [Suspect]
     Active Substance: OCRELIZUMAB
     Indication: MULTIPLE SCLEROSIS
     Dosage: RECEIVED 2 SPLIT DOSES ;ONGOING: UNKNOWN
     Route: 042
     Dates: start: 20190822

REACTIONS (1)
  - First trimester pregnancy [Unknown]

NARRATIVE: CASE EVENT DATE: 20200219
